FAERS Safety Report 13160246 (Version 5)
Quarter: 2017Q2

REPORT INFORMATION
  Report Type: Spontaneous
  Country: US (occurrence: US)
  Receive Date: 20170127
  Receipt Date: 20170628
  Transmission Date: 20170830
  Serious: Yes (Hospitalization)
  Sender: FDA-Public Use
  Company Number: US-VERTEX PHARMACEUTICALS-2017-000471

PATIENT
  Sex: Female
  Weight: 46 kg

DRUGS (34)
  1. OMEGA [Concomitant]
     Active Substance: CONVALLARIA MAJALIS\CRATAEGUS LAEVIGATA LEAF\PROXYPHYLLINE
     Dosage: 3 DF, TID
     Route: 048
  2. PROVENTIL HFA [Concomitant]
     Active Substance: ALBUTEROL SULFATE
     Indication: WHEEZING
  3. VITAMIN E [Concomitant]
     Active Substance: .ALPHA.-TOCOPHEROL
     Dosage: 1 DF, QD
  4. FLAXSEED [Concomitant]
     Active Substance: FLAX SEED
     Dosage: 5 DF, TID
  5. ORKAMBI [Suspect]
     Active Substance: IVACAFTOR\LUMACAFTOR
     Indication: CYSTIC FIBROSIS
     Dosage: 2 DF (200/125 MG), BID
     Route: 048
     Dates: start: 20151017
  6. SODIUM CHLORIDE. [Concomitant]
     Active Substance: SODIUM CHLORIDE
     Dosage: 4 ML, BID
     Route: 055
  7. BETHKIS [Concomitant]
     Active Substance: TOBRAMYCIN
     Dosage: 4 ML, BID
     Route: 055
  8. PULMOZYME [Suspect]
     Active Substance: DORNASE ALFA
     Indication: CYSTIC FIBROSIS
     Dosage: 1 MG/ML, QD
     Route: 055
     Dates: start: 20160201
  9. TOBI [Concomitant]
     Active Substance: TOBRAMYCIN
  10. COMPLETE MULTI VIT [Concomitant]
     Dosage: 1 DF, QD
     Route: 048
  11. OMEPRAZOLE. [Concomitant]
     Active Substance: OMEPRAZOLE
     Dosage: 20 MG, QD
  12. ONDANSETRON HCL [Concomitant]
     Active Substance: ONDANSETRON HYDROCHLORIDE
     Dosage: 4 MG, EVERY 6-8 HOURS
  13. ZENPEP [Concomitant]
     Active Substance: PANCRELIPASE AMYLASE\PANCRELIPASE LIPASE\PANCRELIPASE PROTEASE
  14. COMPLETE [Concomitant]
     Active Substance: CALCIUM CARBONATE\FAMOTIDINE\MAGNESIUM HYDROXIDE
  15. AZITHROMYCIN ANHYDROUS. [Concomitant]
     Active Substance: AZITHROMYCIN ANHYDROUS
     Dosage: 500 MG EVERY MON, WED AND FRO
     Route: 048
  16. ALBUTEROL SULFATE. [Concomitant]
     Active Substance: ALBUTEROL SULFATE
     Indication: WHEEZING
  17. COPPER GLUCONATE [Concomitant]
     Active Substance: COPPER GLUCONATE
     Dosage: 2 MG, QD
     Route: 048
  18. FLUTICASONE. [Concomitant]
     Active Substance: FLUTICASONE
     Dosage: 2 SPRAYS, QD
     Route: 055
  19. MEPHYTON [Concomitant]
     Active Substance: PHYTONADIONE
     Dosage: 5 MG, QD
     Route: 048
  20. PROVENTIL HFA [Concomitant]
     Active Substance: ALBUTEROL SULFATE
     Indication: COUGH
     Dosage: 2 PUFFS EVERY 3-4 HOURS
  21. ALBUTEROL. [Concomitant]
     Active Substance: ALBUTEROL
  22. PANCREATIC ENZYMES [Concomitant]
     Active Substance: UNSPECIFIED INGREDIENT
  23. ALBUTEROL SULFATE. [Concomitant]
     Active Substance: ALBUTEROL SULFATE
     Indication: COUGH
     Dosage: 1 VIAL, TIDEVERY 3-4 HRS AS NEEDED
     Route: 055
  24. MONTELUKAST [Concomitant]
     Active Substance: MONTELUKAST SODIUM
     Dosage: 10 MG, QD
     Route: 048
  25. SCANDISHAKE MIX [Concomitant]
     Active Substance: DIETARY SUPPLEMENT
     Dosage: 2 PACKET, QD
     Route: 048
  26. CAYSTON [Concomitant]
     Active Substance: AZTREONAM
     Dosage: 1 ML, TID
     Route: 055
  27. COLISTIN [Concomitant]
     Active Substance: COLISTIN
     Dosage: 1 VIAL (150MG) WITH 2ML STERILE WATER , BID
     Route: 055
  28. SELENIUM [Concomitant]
     Active Substance: SELENIUM
     Dosage: 1 DF, BID
     Route: 048
  29. FERROUS SULFATE. [Concomitant]
     Active Substance: FERROUS SULFATE
     Dosage: 1 DF, QD
     Route: 048
  30. ADVAIR HFA [Concomitant]
     Active Substance: FLUTICASONE PROPIONATE\SALMETEROL XINAFOATE
     Dosage: 2 PUFFS, BID
     Route: 055
  31. ALBUTEROL SULFATE. [Concomitant]
     Active Substance: ALBUTEROL SULFATE
     Indication: DYSPNOEA
  32. CALCITRIOL. [Concomitant]
     Active Substance: CALCITRIOL
     Dosage: 1 DF, QD
  33. CHOLECALCIFEROL [Concomitant]
     Active Substance: CHOLECALCIFEROL
     Dosage: 1 DF, QD
     Route: 048
  34. OS-CAL + D [Concomitant]
     Dosage: 1 DF, BID
     Route: 048

REACTIONS (2)
  - Infective pulmonary exacerbation of cystic fibrosis [Recovered/Resolved]
  - Weight decreased [Unknown]

NARRATIVE: CASE EVENT DATE: 2016
